FAERS Safety Report 20814065 (Version 6)
Quarter: 2023Q1

REPORT INFORMATION
  Report Type: Report from Study
  Country: US (occurrence: US)
  Receive Date: 20220511
  Receipt Date: 20230317
  Transmission Date: 20230418
  Serious: Yes (Other)
  Sender: FDA-Public Use
  Company Number: US-HBP-2022US026389

PATIENT
  Sex: Male

DRUGS (4)
  1. TRUSELTIQ [Suspect]
     Active Substance: INFIGRATINIB
     Indication: Metastasis
     Dosage: 125 MILLIGRAM, QD
     Route: 048
     Dates: end: 2021
  2. TRUSELTIQ [Suspect]
     Active Substance: INFIGRATINIB
     Dosage: 100 MILLIGRAM, ON DAYS 1-21 EVERY 28 DAYS
     Route: 048
     Dates: start: 20220101, end: 20220601
  3. TRUSELTIQ [Suspect]
     Active Substance: INFIGRATINIB
     Dosage: 50 MILLIGRAM, DAILY FOR 21 DAYS
     Route: 048
     Dates: start: 20220602, end: 20230309
  4. HUMALOG [Concomitant]
     Active Substance: INSULIN LISPRO
     Dosage: UNK, UNKNOWN

REACTIONS (17)
  - Polyarthritis [Unknown]
  - Ulcerative keratitis [Unknown]
  - Visual impairment [Unknown]
  - Muscle atrophy [Unknown]
  - Iron deficiency [Recovered/Resolved]
  - Off label use [Unknown]
  - Product dose omission issue [Unknown]
  - Therapy change [Unknown]
  - Pain in extremity [Unknown]
  - Onychomadesis [Unknown]
  - Alopecia [Unknown]
  - Vision blurred [Unknown]
  - Nail disorder [Unknown]
  - Asthenia [Unknown]
  - Stomatitis [Unknown]
  - Dry eye [Unknown]
  - Anaemia [Unknown]
